FAERS Safety Report 14258261 (Version 1)
Quarter: 2017Q4

REPORT INFORMATION
  Report Type: Spontaneous
  Country: US (occurrence: US)
  Receive Date: 20171206
  Receipt Date: 20171206
  Transmission Date: 20180321
  Serious: No
  Sender: FDA-Public Use
  Company Number: None

PATIENT
  Age: 59 Year
  Sex: Male
  Weight: 67.5 kg

DRUGS (9)
  1. METHYLPHENIDATE ER, IC: METHYLPHENIDATE HCL [Suspect]
     Active Substance: METHYLPHENIDATE
     Indication: DEPRESSION
     Dosage: ?          QUANTITY:1 TABLET(S);?
     Route: 048
     Dates: start: 20171205, end: 20171206
  2. MELATONIN [Concomitant]
     Active Substance: MELATONIN
  3. LAMICTAL [Concomitant]
     Active Substance: LAMOTRIGINE
  4. TRAZODONE [Concomitant]
     Active Substance: TRAZODONE HYDROCHLORIDE
  5. CYMBALTA [Concomitant]
     Active Substance: DULOXETINE HYDROCHLORIDE
  6. ATOMOXETINE. [Suspect]
     Active Substance: ATOMOXETINE HYDROCHLORIDE
     Indication: DEPRESSION
     Dosage: ?          QUANTITY:2 CAPSULE(S);?
     Route: 048
     Dates: start: 20171126, end: 20171205
  7. RANITIDINE. [Concomitant]
     Active Substance: RANITIDINE
  8. VITAMIN D [Concomitant]
     Active Substance: CHOLECALCIFEROL
  9. MULTIVIT [Concomitant]
     Active Substance: VITAMINS

REACTIONS (5)
  - Hypervigilance [None]
  - Anxiety [None]
  - Withdrawal syndrome [None]
  - Agitation [None]
  - Head discomfort [None]

NARRATIVE: CASE EVENT DATE: 20171205
